FAERS Safety Report 4352228-7 (Version None)
Quarter: 2004Q2

REPORT INFORMATION
  Report Type: 
  Country: None (occurrence: None)
  Receive Date: 20040428
  Receipt Date: 20040415
  Transmission Date: 20050107
  Serious: Yes (Death, Life-Threatening, Hospitalization)
  Sender: FDA-Public Use
  Company Number: DE-SHR-04-024056

PATIENT
  Age: 78 Year
  Sex: Male

DRUGS (1)
  1. FLUDARA [Suspect]
     Indication: CHRONIC LYMPHOCYTIC LEUKAEMIA
     Dosage: 1 DOSE, INTRAVENOUS
     Route: 042
     Dates: start: 20030901, end: 20030905

REACTIONS (5)
  - ANOREXIA [None]
  - ASTHENIA [None]
  - CARDIAC FAILURE [None]
  - GENERAL PHYSICAL HEALTH DETERIORATION [None]
  - PNEUMONIA PNEUMOCOCCAL [None]
